FAERS Safety Report 17179424 (Version 1)
Quarter: 2019Q4

REPORT INFORMATION
  Report Type: Spontaneous
  Country: US (occurrence: US)
  Receive Date: 20191219
  Receipt Date: 20191219
  Transmission Date: 20200122
  Serious: Yes (Other)
  Sender: FDA-Public Use
  Company Number: US-ROCHE-2501988

PATIENT
  Age: 75 Year

DRUGS (1)
  1. ACTILYSE [Suspect]
     Active Substance: ALTEPLASE
     Indication: THERAPEUTIC EMBOLISATION
     Route: 042

REACTIONS (1)
  - Carotid artery occlusion [Unknown]
